FAERS Safety Report 8407797-4 (Version None)
Quarter: 2012Q2

REPORT INFORMATION
  Report Type: 
  Country: None (occurrence: None)
  Receive Date: 20120604
  Receipt Date: 20120531
  Transmission Date: 20120825
  Serious: Yes (Other)
  Sender: FDA-Public Use
  Company Number: GB-GLAXOSMITHKLINE-B0804941A

PATIENT
  Age: 71 Year
  Sex: Female

DRUGS (5)
  1. ROPINIROLE [Suspect]
  2. SIMVASTATIN [Concomitant]
  3. PAROXETINE HCL [Concomitant]
  4. OXAZEPAM [Concomitant]
  5. WARFARIN SODIUM [Concomitant]

REACTIONS (1)
  - IDIOPATHIC THROMBOCYTOPENIC PURPURA [None]
